FAERS Safety Report 7292715-5 (Version None)
Quarter: 2011Q1

REPORT INFORMATION
  Report Type: 
  Country: None (occurrence: None)
  Receive Date: 20110215
  Receipt Date: 20110204
  Transmission Date: 20110831
  Serious: Yes (Disabling)
  Sender: FDA-Public Use
  Company Number: FR-NOVOPROD-322948

PATIENT
  Sex: Female
  Weight: 69 kg

DRUGS (1)
  1. LIRAGLUTIDE FLEXPEN [Suspect]
     Indication: TYPE 2 DIABETES MELLITUS
     Dosage: 1.2 MG, QD
     Route: 058
     Dates: start: 20101227, end: 20110124

REACTIONS (3)
  - GASTROINTESTINAL DISORDER [None]
  - WEIGHT DECREASED [None]
  - ASTHENIA [None]
